FAERS Safety Report 9403693 (Version 5)
Quarter: 2014Q1

REPORT INFORMATION
  Report Type: Report from Study
  Country: GB (occurrence: GB)
  Receive Date: 20130717
  Receipt Date: 20140130
  Transmission Date: 20141002
  Serious: Yes (Hospitalization)
  Sender: FDA-Public Use
  Company Number: GB-BRISTOL-MYERS SQUIBB COMPANY-19097385

PATIENT
  Age: 50 Year
  Sex: Female

DRUGS (6)
  1. IPILIMUMAB [Suspect]
     Indication: METASTATIC MALIGNANT MELANOMA
     Dosage: INTERRUPTED ON 17-JUN-2013.?2ND DOSE ON 05AUG2013
     Route: 042
     Dates: start: 20130617
  2. GLICLAZIDE [Concomitant]
     Dates: start: 20130708
  3. METFORMIN [Concomitant]
     Dates: start: 20130708
  4. ACTRAPID [Concomitant]
     Dosage: 1DF:4UNITS.
     Dates: start: 20130709
  5. DEXAMETHASONE [Concomitant]
     Dates: start: 20130709
  6. PROPANOL [Concomitant]
     Route: 048
     Dates: start: 20110324

REACTIONS (3)
  - Abdominal pain [Recovered/Resolved with Sequelae]
  - Diarrhoea [Recovered/Resolved with Sequelae]
  - Colitis [Unknown]
